FAERS Safety Report 11118774 (Version 1)
Quarter: 2015Q2

REPORT INFORMATION
  Report Type: Spontaneous
  Country: US (occurrence: US)
  Receive Date: 20150518
  Receipt Date: 20150518
  Transmission Date: 20150821
  Serious: No
  Sender: FDA-Public Use
  Company Number: US-ELI_LILLY_AND_COMPANY-US201505003804

PATIENT
  Sex: Male

DRUGS (1)
  1. HUMALOG [Suspect]
     Active Substance: INSULIN LISPRO
     Indication: DIABETES MELLITUS
     Dosage: 50-60 U, TID
     Route: 065

REACTIONS (4)
  - Incorrect dose administered [Unknown]
  - Hypoacusis [Unknown]
  - Injection site laceration [Unknown]
  - Malaise [Unknown]
